FAERS Safety Report 22960649 (Version 2)
Quarter: 2023Q4

REPORT INFORMATION
  Report Type: Spontaneous
  Country: JP (occurrence: JP)
  Receive Date: 20230920
  Receipt Date: 20231123
  Transmission Date: 20240109
  Serious: Yes (Hospitalization, Other)
  Sender: FDA-Public Use
  Company Number: JP-ASTELLAS-2023JP010581

PATIENT
  Age: 60 Year
  Sex: Female

DRUGS (14)
  1. ZOLPIDEM TARTRATE [Suspect]
     Active Substance: ZOLPIDEM TARTRATE
     Indication: Generalised anxiety disorder
     Dosage: 10 MG, UNKNOWN FREQ.
     Route: 048
  2. ZOLPIDEM TARTRATE [Suspect]
     Active Substance: ZOLPIDEM TARTRATE
     Indication: Withdrawal catatonia
     Dosage: 5 MG, UNKNOWN FREQ.
     Route: 048
  3. ZOLPIDEM TARTRATE [Suspect]
     Active Substance: ZOLPIDEM TARTRATE
     Indication: Delirium
  4. QUETIAPINE FUMARATE [Suspect]
     Active Substance: QUETIAPINE FUMARATE
     Indication: Generalised anxiety disorder
     Dosage: 225 MG/DAY, UNKNOWN FREQ.
     Route: 048
  5. QUETIAPINE FUMARATE [Suspect]
     Active Substance: QUETIAPINE FUMARATE
     Indication: Withdrawal catatonia
     Dosage: 50 MG, ONCE DAILY (BEFORE BEDTIME)
     Route: 048
  6. QUETIAPINE FUMARATE [Suspect]
     Active Substance: QUETIAPINE FUMARATE
     Indication: Delirium
  7. ALPRAZOLAM [Suspect]
     Active Substance: ALPRAZOLAM
     Indication: Generalised anxiety disorder
     Dosage: 2.4 MG/DAY, UNKNOWN FREQ.
     Route: 048
  8. ALPRAZOLAM [Suspect]
     Active Substance: ALPRAZOLAM
     Indication: Withdrawal catatonia
     Dosage: 2.4 MG/DAY, UNKNOWN FREQ.
     Route: 048
  9. ALPRAZOLAM [Suspect]
     Active Substance: ALPRAZOLAM
     Indication: Delirium
     Dosage: 1.2 MG/DAY, UNKNOWN FREQ.
     Route: 048
  10. NITRAZEPAM [Suspect]
     Active Substance: NITRAZEPAM
     Indication: Generalised anxiety disorder
     Dosage: 10 MG/DAY, UNKNOWN FREQ.
     Route: 048
  11. NITRAZEPAM [Suspect]
     Active Substance: NITRAZEPAM
     Indication: Withdrawal catatonia
     Dosage: 5 MG/DAY, UNKNOWN FREQ.
     Route: 048
  12. NITRAZEPAM [Suspect]
     Active Substance: NITRAZEPAM
     Indication: Delirium
  13. MIRTAZAPINE [Concomitant]
     Active Substance: MIRTAZAPINE
     Indication: Generalised anxiety disorder
     Dosage: 30 MG/DAY, UNKNOWN FREQ.
     Route: 048
  14. LEMBOREXANT [Concomitant]
     Active Substance: LEMBOREXANT
     Indication: Product used for unknown indication
     Dosage: 5 MG/DAY, UNKNOWN FREQ.
     Route: 048

REACTIONS (15)
  - Withdrawal catatonia [Recovered/Resolved]
  - Therapy cessation [Recovered/Resolved]
  - Asthenia [Recovered/Resolved]
  - Waxy flexibility [Recovered/Resolved]
  - Akinesia [Recovered/Resolved]
  - Muscle rigidity [Recovered/Resolved]
  - Hallucination, visual [Recovered/Resolved]
  - Hypoxia [Recovered/Resolved]
  - Vomiting [Recovered/Resolved]
  - Tremor [Recovered/Resolved]
  - Stupor [Recovered/Resolved]
  - Delirium [Recovered/Resolved]
  - Dysuria [Recovered/Resolved]
  - Disorganised speech [Recovered/Resolved]
  - Insomnia [Recovered/Resolved]
